FAERS Safety Report 10478613 (Version 1)
Quarter: 2014Q3

REPORT INFORMATION
  Report Type: Spontaneous
  Country: FR (occurrence: FR)
  Receive Date: 20140926
  Receipt Date: 20140926
  Transmission Date: 20150326
  Serious: Yes (Hospitalization)
  Sender: FDA-Public Use
  Company Number: FR-SA-2014SA130715

PATIENT
  Age: 85 Year
  Sex: Female

DRUGS (7)
  1. ALDACTONE [Suspect]
     Active Substance: SPIRONOLACTONE
     Indication: HYPERTENSION
     Dosage: STRENGTH: 50 MG
     Route: 048
     Dates: end: 20140904
  2. PARACETAMOL [Concomitant]
     Active Substance: ACETAMINOPHEN
  3. EUPANTOL [Concomitant]
     Active Substance: PANTOPRAZOLE SODIUM
  4. LASILIX [Suspect]
     Active Substance: FUROSEMIDE
     Indication: HYPERTENSION
     Dosage: STRENGTH:40 MG
     Route: 048
     Dates: end: 20140904
  5. OLMETEC [Suspect]
     Active Substance: OLMESARTAN MEDOXOMIL
     Indication: HYPERTENSION
     Dosage: STRENGTH:20 MG
     Route: 048
     Dates: end: 20140904
  6. FRAGMIN [Concomitant]
     Active Substance: DALTEPARIN SODIUM
  7. LAMALINE [Suspect]
     Active Substance: ACETAMINOPHEN\CAFFEINE\OPIUM
     Indication: PAIN
     Route: 048

REACTIONS (1)
  - Fall [Recovered/Resolved]

NARRATIVE: CASE EVENT DATE: 20140827
